FAERS Safety Report 7199616-1 (Version None)
Quarter: 2010Q4

REPORT INFORMATION
  Report Type: 
  Country: None (occurrence: None)
  Receive Date: 20101228
  Receipt Date: 20101215
  Transmission Date: 20110411
  Serious: Yes (Hospitalization, Other)
  Sender: FDA-Public Use
  Company Number: US-ELI_LILLY_AND_COMPANY-US201003005789

PATIENT
  Sex: Female

DRUGS (1)
  1. FORTEO [Suspect]
     Indication: OSTEOPOROSIS
     Dosage: 20 UG, DAILY (1/D)
     Dates: start: 20090501

REACTIONS (7)
  - ARTHRALGIA [None]
  - DEHYDRATION [None]
  - FALL [None]
  - GASTROINTESTINAL DISORDER [None]
  - HEADACHE [None]
  - HIP FRACTURE [None]
  - PAIN IN EXTREMITY [None]
